FAERS Safety Report 19312609 (Version 1)
Quarter: 2021Q2

REPORT INFORMATION
  Report Type: Spontaneous
  Country: US (occurrence: US)
  Receive Date: 20210527
  Receipt Date: 20210527
  Transmission Date: 20210717
  Serious: No
  Sender: FDA-Public Use
  Company Number: US-BRISTOL-MYERS SQUIBB COMPANY-BMS-2021-049355

PATIENT
  Sex: Male

DRUGS (3)
  1. YERVOY [Suspect]
     Active Substance: IPILIMUMAB
     Indication: METASTATIC MALIGNANT MELANOMA
     Dosage: UNK
     Route: 065
  2. OPDIVO [Suspect]
     Active Substance: NIVOLUMAB
     Indication: METASTATIC MALIGNANT MELANOMA
     Dosage: UNK
     Route: 065
  3. YERVOY [Suspect]
     Active Substance: IPILIMUMAB
     Dosage: UNK
     Route: 065
     Dates: start: 20210519

REACTIONS (4)
  - Dyspnoea [Recovered/Resolved]
  - Back pain [Recovered/Resolved]
  - Hypertension [Recovered/Resolved]
  - Rash [Recovered/Resolved]
